FAERS Safety Report 11180719 (Version 1)
Quarter: 2015Q2

REPORT INFORMATION
  Report Type: Report from Study
  Country: AU (occurrence: None)
  Receive Date: 20150609
  Receipt Date: 20150609
  Transmission Date: 20150821
  Serious: Yes (Hospitalization)
  Sender: FDA-Public Use
  Company Number: KAD201506-001488

PATIENT
  Age: 75 Year
  Sex: Female
  Weight: 101 kg

DRUGS (11)
  1. ABT-333 (DASABUVIR) [Suspect]
     Active Substance: DASABUVIR
     Indication: HEPATITIS C
     Dosage: 250 MG, TWO IN ONE DAY (500 MG)
     Route: 048
     Dates: start: 20150419, end: 20150525
  2. RIBAVIRIN (RIBAVIRIN) [Suspect]
     Active Substance: RIBAVIRIN
     Indication: HEPATITIS C
     Route: 048
     Dates: start: 20150419, end: 20150525
  3. TOPIRAMATE. [Concomitant]
     Active Substance: TOPIRAMATE
  4. AVAPRO HCT (IRBESARTAN) [Concomitant]
  5. AMLODIPINE [Concomitant]
     Active Substance: AMLODIPINE BESYLATE
  6. LANTUS [Concomitant]
     Active Substance: INSULIN GLARGINE
  7. OMEPRAZOLE. [Concomitant]
     Active Substance: OMEPRAZOLE
  8. PAROXETINE [Concomitant]
     Active Substance: PAROXETINE\PAROXETINE HYDROCHLORIDE
  9. NOVORAPID [Concomitant]
     Active Substance: INSULIN ASPART
  10. URSOFALK (URSODEOXYCHOLIC ACID) [Concomitant]
  11. ABT-450/RITONAVIR/ABT-267 (OMBITASVIR, PARITAPREVIR, RITONAVIR) [Suspect]
     Active Substance: OMBITASVIR\PARITAPREVIR\RITONAVIR
     Indication: HEPATITIS C
     Dosage: 75/50/12.5 MG (1 TABLET, TWO IN ONE DAY)
     Route: 048
     Dates: start: 20150419, end: 20150525

REACTIONS (7)
  - Cardiac failure [None]
  - Pulmonary embolism [None]
  - Lung infection [None]
  - Pulmonary oedema [None]
  - Urosepsis [None]
  - Anaemia [None]
  - Renal impairment [None]

NARRATIVE: CASE EVENT DATE: 20150521
